FAERS Safety Report 9715718 (Version 4)
Quarter: 2014Q2

REPORT INFORMATION
  Report Type: Spontaneous
  Country: FR (occurrence: FR)
  Receive Date: 20131127
  Receipt Date: 20140430
  Transmission Date: 20141212
  Serious: Yes (Hospitalization)
  Sender: FDA-Public Use
  Company Number: FR-JNJFOC-20131114767

PATIENT
  Age: 63 Year
  Sex: Male

DRUGS (9)
  1. IXPRIM [Suspect]
     Indication: ROTATOR CUFF SYNDROME
     Route: 048
     Dates: start: 20130822, end: 20130829
  2. TRIATEC [Suspect]
     Indication: PRODUCT USED FOR UNKNOWN INDICATION
     Route: 048
     Dates: start: 20130801, end: 20130829
  3. ZOCOR [Suspect]
     Indication: PRODUCT USED FOR UNKNOWN INDICATION
     Route: 048
     Dates: end: 20130829
  4. DIAMICRON [Suspect]
     Indication: PRODUCT USED FOR UNKNOWN INDICATION
     Route: 048
     Dates: end: 20130829
  5. TEMERIT [Suspect]
     Indication: PRODUCT USED FOR UNKNOWN INDICATION
     Route: 048
     Dates: end: 20130829
  6. EUCREAS [Suspect]
     Indication: PRODUCT USED FOR UNKNOWN INDICATION
     Route: 048
     Dates: start: 20130801, end: 20130829
  7. LERCAN [Concomitant]
     Route: 048
     Dates: end: 20130829
  8. METFORMIN [Concomitant]
     Route: 048
     Dates: end: 201308
  9. TRIATEC [Concomitant]
     Indication: PRODUCT USED FOR UNKNOWN INDICATION
     Route: 050
     Dates: end: 20130801

REACTIONS (4)
  - Renal failure acute [Recovered/Resolved]
  - Tubulointerstitial nephritis [Recovered/Resolved]
  - Hyperkalaemia [Recovered/Resolved]
  - Lipase increased [Recovered/Resolved]
